FAERS Safety Report 7650033-7 (Version None)
Quarter: 2011Q3

REPORT INFORMATION
  Report Type: 
  Country: None (occurrence: None)
  Receive Date: 20110802
  Receipt Date: 20110802
  Transmission Date: 20111222
  Serious: Yes (Hospitalization)
  Sender: FDA-Public Use
  Company Number: None

PATIENT
  Age: 57 Year
  Sex: Female

DRUGS (12)
  1. LANTUS [Concomitant]
  2. METFORMIN HCL [Concomitant]
  3. GLYBURIDE [Concomitant]
  4. LISINOPRIL [Concomitant]
  5. ATENOLOL [Suspect]
     Indication: HYPERTENSION
     Dosage: 100MG
     Route: 048
  6. TRAMADOL HCL [Concomitant]
  7. LASIX [Concomitant]
  8. NORVASC [Concomitant]
  9. SYNTHROID [Concomitant]
  10. VITAMIN B-12 [Concomitant]
  11. MECLIZINE [Concomitant]
  12. POTASSIUM [Concomitant]

REACTIONS (1)
  - BRADYCARDIA [None]
